FAERS Safety Report 6890595-0 (Version None)
Quarter: 2010Q3

REPORT INFORMATION
  Report Type: 
  Country: None (occurrence: None)
  Receive Date: 20100731
  Receipt Date: 20081229
  Transmission Date: 20110219
  Serious: No
  Sender: FDA-Public Use
  Company Number: US-PFIZER INC-2008160816

PATIENT
  Sex: Female
  Weight: 63.502 kg

DRUGS (7)
  1. LIPITOR [Suspect]
     Indication: BLOOD CHOLESTEROL INCREASED
     Dosage: 10 MG, 1X/DAY
  2. ACETYLSALICYLIC ACID SRT [Interacting]
     Dosage: 81 MG, 1X/DAY
  3. MULTI-VITAMINS [Interacting]
     Indication: MACULAR DEGENERATION
  4. GINGKOMIN [Interacting]
  5. SYNTHROID [Concomitant]
     Indication: THYROID NEOPLASM
     Dosage: 0.5 MG FOR TWO DAYS AND 0.75 MG ON THE THIRD DAY WITH REPEATED CYCLES
  6. ATENOLOL [Concomitant]
     Indication: HYPERTENSION
     Dosage: 25MG DAILY
  7. SERTRALINE HYDROCHLORIDE [Concomitant]
     Indication: DEPRESSION
     Dosage: 25 MG DAILY

REACTIONS (5)
  - DRUG INTERACTION [None]
  - HAEMORRHAGE [None]
  - MYALGIA [None]
  - PRURITUS [None]
  - WRONG TECHNIQUE IN DRUG USAGE PROCESS [None]
